FAERS Safety Report 15325217 (Version 1)
Quarter: 2018Q3

REPORT INFORMATION
  Report Type: Spontaneous
  Country: US (occurrence: US)
  Receive Date: 20180822
  Receipt Date: 20180822
  Transmission Date: 20181010
  Serious: No
  Sender: FDA-Public Use
  Company Number: None

PATIENT
  Age: 15 Year

DRUGS (1)
  1. PROMACTA [Suspect]
     Active Substance: ELTROMBOPAG OLAMINE

REACTIONS (3)
  - Pharyngitis [None]
  - Hypersensitivity [None]
  - Pharyngitis streptococcal [None]

NARRATIVE: CASE EVENT DATE: 20180822
